FAERS Safety Report 9714226 (Version 3)
Quarter: 2015Q3

REPORT INFORMATION
  Report Type: Spontaneous
  Country: US (occurrence: US)
  Receive Date: 20131126
  Receipt Date: 20150803
  Transmission Date: 20151125
  Serious: Yes (Other)
  Sender: FDA-Public Use
  Company Number: US-GILEAD-2008-0018664

PATIENT
  Age: 36 Year
  Sex: Female

DRUGS (10)
  1. DIAZEPAM. [Concomitant]
     Active Substance: DIAZEPAM
  2. HYDROCHLOROTHIAZIDE. [Concomitant]
     Active Substance: HYDROCHLOROTHIAZIDE
  3. ALLOPURINOL. [Concomitant]
     Active Substance: ALLOPURINOL
  4. ASPIRIN. [Concomitant]
     Active Substance: ASPIRIN
  5. DIGOXIN. [Concomitant]
     Active Substance: DIGOXIN
  6. LETAIRIS [Suspect]
     Active Substance: AMBRISENTAN
     Indication: PULMONARY ARTERIAL HYPERTENSION
     Route: 048
     Dates: start: 20080822
  7. CODEINE PHOSPHATE [Concomitant]
     Active Substance: CODEINE PHOSPHATE
  8. LEVOTHYROXINE. [Concomitant]
     Active Substance: LEVOTHYROXINE
  9. LETAIRIS [Suspect]
     Active Substance: AMBRISENTAN
     Route: 048
  10. BACLOFEN. [Concomitant]
     Active Substance: BACLOFEN

REACTIONS (3)
  - Weight increased [None]
  - Swelling [None]
  - Oedema [None]

NARRATIVE: CASE EVENT DATE: 200810
